FAERS Safety Report 8484067-X (Version None)
Quarter: 2012Q3

REPORT INFORMATION
  Report Type: 
  Country: None (occurrence: None)
  Receive Date: 20120703
  Receipt Date: 20120629
  Transmission Date: 20120928
  Serious: No
  Sender: FDA-Public Use
  Company Number: US-PFIZER INC-2012156992

PATIENT
  Sex: Male
  Weight: 79.365 kg

DRUGS (2)
  1. XANAX [Concomitant]
     Indication: PANIC ATTACK
     Dosage: UNK
  2. VIAGRA [Suspect]
     Indication: ERECTILE DYSFUNCTION
     Dosage: 100 MG, AS NEEDED
     Route: 048
     Dates: start: 20120306

REACTIONS (1)
  - DRUG EFFECT DECREASED [None]
